FAERS Safety Report 5674955-1 (Version None)
Quarter: 2008Q2

REPORT INFORMATION
  Report Type: 
  Country: None (occurrence: None)
  Receive Date: 20080303
  Receipt Date: 20070817
  Transmission Date: 20081010
  Serious: Yes (Other)
  Sender: FDA-Public Use
  Company Number: RB-7739-2007

PATIENT
  Age: 27 Year
  Sex: Male
  Weight: 52.1637 kg

DRUGS (2)
  1. SUBUTEX [Suspect]
     Indication: DRUG DEPENDENCE
     Dosage: 24 MG QD SUBLINGUAL
     Route: 060
     Dates: start: 20070101, end: 20070801
  2. SUBOXONE [Suspect]
     Indication: DRUG DEPENDENCE
     Dosage: 16 MG QD SUBLINGUAL
     Route: 060
     Dates: start: 20070801, end: 20070901

REACTIONS (3)
  - DECREASED APPETITE [None]
  - DEPRESSION [None]
  - WEIGHT DECREASED [None]
